FAERS Safety Report 7304668-1 (Version None)
Quarter: 2011Q1

REPORT INFORMATION
  Report Type: 
  Country: None (occurrence: None)
  Receive Date: 20110222
  Receipt Date: 20110216
  Transmission Date: 20110831
  Serious: Yes (Other)
  Sender: FDA-Public Use
  Company Number: US-AMGEN-USASP2011009239

PATIENT
  Sex: Female

DRUGS (6)
  1. LIPITOR [Concomitant]
  2. NPLATE [Suspect]
     Indication: IDIOPATHIC THROMBOCYTOPENIC PURPURA
     Dosage: 10 A?G/KG, UNK
     Dates: start: 20101028, end: 20101216
  3. CARDIZEM [Concomitant]
  4. CORTICOSTEROIDS [Concomitant]
  5. TRAZODONE [Concomitant]
  6. LISINOPRIL [Concomitant]

REACTIONS (3)
  - EPISTAXIS [None]
  - PLATELET COUNT DECREASED [None]
  - HAEMORRHAGE [None]
